FAERS Safety Report 17872743 (Version 1)
Quarter: 2020Q2

REPORT INFORMATION
  Report Type: Spontaneous
  Country: US (occurrence: US)
  Receive Date: 20200608
  Receipt Date: 20200608
  Transmission Date: 20200714
  Serious: No
  Sender: FDA-Public Use
  Company Number: US-FRESENIUS KABI-FK202005578

PATIENT
  Sex: Female

DRUGS (3)
  1. OMEGAVEN [Suspect]
     Active Substance: FISH OIL
     Indication: PARENTERAL NUTRITION
     Route: 065
     Dates: start: 202005
  2. SMOFLIPID [Suspect]
     Active Substance: FISH OIL\MEDIUM-CHAIN TRIGLYCERIDES\OLIVE OIL\SOYBEAN OIL
     Indication: PARENTERAL NUTRITION
     Route: 065
     Dates: start: 202004
  3. OMEGAVEN [Suspect]
     Active Substance: FISH OIL
     Route: 065
     Dates: start: 20200503

REACTIONS (3)
  - Intentional product use issue [Unknown]
  - Fatty acid deficiency [Unknown]
  - Hyperbilirubinaemia [Unknown]
